FAERS Safety Report 5805242-6 (Version None)
Quarter: 2008Q3

REPORT INFORMATION
  Report Type: 
  Country: None (occurrence: None)
  Receive Date: 20080703
  Receipt Date: 20080627
  Transmission Date: 20090109
  Serious: Yes (Hospitalization)
  Sender: FDA-Public Use
  Company Number: A0735331A

PATIENT
  Age: 41 Year
  Sex: Female

DRUGS (2)
  1. ASPIRIN + CAFFEINE + PARACETAMOL POWDER (ACETAMINOPHEN + ASPIRIN +) [Suspect]
     Indication: HEADACHE
     Dosage: 2 SEE TEXT / PER DAY /
  2. ASPIRIN + CAFFEINE + PARACETAMOL POWDER (ACETAMINOPHEN + ASPIRIN +) [Suspect]
     Indication: HEADACHE
     Dosage: 2 SEE TEXT / PER DAY /

REACTIONS (13)
  - GASTRIC CYST [None]
  - GASTRIC INFECTION [None]
  - GASTRIC POLYPS [None]
  - INFLUENZA LIKE ILLNESS [None]
  - LIVER DISORDER [None]
  - MIGRAINE [None]
  - MUSCULOSKELETAL PAIN [None]
  - NECK PAIN [None]
  - OESOPHAGEAL INFECTION [None]
  - PAIN IN EXTREMITY [None]
  - RENAL FAILURE [None]
  - SPLEEN DISORDER [None]
  - VOMITING [None]
